FAERS Safety Report 7753795-3 (Version None)
Quarter: 2011Q3

REPORT INFORMATION
  Report Type: 
  Country: None (occurrence: None)
  Receive Date: 20110913
  Receipt Date: 20110829
  Transmission Date: 20111222
  Serious: Yes (Other)
  Sender: FDA-Public Use
  Company Number: 2011-353

PATIENT
  Sex: Male

DRUGS (1)
  1. PRIALT [Suspect]
     Dosage: ONCE/HOUR, INTRATHECAL
     Route: 037

REACTIONS (2)
  - CONDITION AGGRAVATED [None]
  - RESTLESS LEGS SYNDROME [None]
